FAERS Safety Report 9840204 (Version 1)
Quarter: 2013Q4

REPORT INFORMATION
  Report Type: Spontaneous
  Country: US (occurrence: None)
  Receive Date: 20131209
  Receipt Date: 20131209
  Transmission Date: 20140711
  Serious: Yes (Other)
  Sender: FDA-Public Use
  Company Number: ALL1-2013-06604

PATIENT
  Sex: Male

DRUGS (1)
  1. ADDERALL XR [Suspect]
     Indication: NERVOUS SYSTEM DISORDER
     Route: 048

REACTIONS (4)
  - Depression [None]
  - Frustration [None]
  - Disturbance in attention [None]
  - Off label use [None]
